FAERS Safety Report 23874375 (Version 3)
Quarter: 2024Q2

REPORT INFORMATION
  Report Type: Spontaneous
  Country: US (occurrence: US)
  Receive Date: 20240520
  Receipt Date: 20240607
  Transmission Date: 20240716
  Serious: No
  Sender: FDA-Public Use
  Company Number: US-PFIZER INC-PV202400064544

PATIENT
  Age: 69 Year
  Sex: Female

DRUGS (1)
  1. NURTEC ODT [Suspect]
     Active Substance: RIMEGEPANT SULFATE
     Indication: Migraine
     Dosage: 75 MG (TRIED 3-4X)
     Route: 048
     Dates: start: 202401, end: 202403

REACTIONS (1)
  - Therapeutic product effect incomplete [Unknown]
